FAERS Safety Report 6093097-7 (Version None)
Quarter: 2009Q1

REPORT INFORMATION
  Report Type: 
  Country: None (occurrence: None)
  Receive Date: 20090226
  Receipt Date: 20090220
  Transmission Date: 20090719
  Serious: Yes (Death, Other)
  Sender: FDA-Public Use
  Company Number: US-CELGENEUS-163-20785-04120652

PATIENT
  Sex: Male
  Weight: 115.54 kg

DRUGS (3)
  1. THALOMID [Suspect]
     Route: 048
     Dates: start: 20040327, end: 20041229
  2. GMCSF [Suspect]
     Dosage: 125 I?G/M2
     Route: 058
     Dates: start: 20040327, end: 20041224
  3. CRESTOR [Concomitant]
     Route: 065

REACTIONS (3)
  - DEEP VEIN THROMBOSIS [None]
  - DRUG INTERACTION [None]
  - PULMONARY EMBOLISM [None]
